FAERS Safety Report 12766625 (Version 1)
Quarter: 2016Q3

REPORT INFORMATION
  Report Type: Spontaneous
  Country: US (occurrence: US)
  Receive Date: 20160916
  Receipt Date: 20160916
  Transmission Date: 20161109
  Serious: No
  Sender: FDA-Public Use
  Company Number: None

PATIENT
  Sex: Female

DRUGS (1)
  1. HUMIRA [Suspect]
     Active Substance: ADALIMUMAB
     Route: 058
     Dates: start: 201608, end: 201608

REACTIONS (8)
  - Vomiting [None]
  - Fatigue [None]
  - Impaired work ability [None]
  - Asthenia [None]
  - Pruritus generalised [None]
  - Dizziness [None]
  - Headache [None]
  - Nausea [None]
